FAERS Safety Report 4582258-1 (Version None)
Quarter: 2005Q1

REPORT INFORMATION
  Report Type: 
  Country: None (occurrence: None)
  Receive Date: 20050127
  Receipt Date: 20040924
  Transmission Date: 20050727
  Serious: No
  Sender: FDA-Public Use
  Company Number: USA040979172

PATIENT
  Age: 9 Year
  Sex: Male
  Weight: 24 kg

DRUGS (1)
  1. STRATTERA [Suspect]
     Dosage: 40 MG
     Dates: start: 20040923

REACTIONS (6)
  - EATING DISORDER [None]
  - FATIGUE [None]
  - HEADACHE [None]
  - PRESCRIBED OVERDOSE [None]
  - SPEECH DISORDER [None]
  - STOMACH DISCOMFORT [None]
